FAERS Safety Report 19184869 (Version 2)
Quarter: 2021Q2

REPORT INFORMATION
  Report Type: Spontaneous
  Country: GB (occurrence: GB)
  Receive Date: 20210427
  Receipt Date: 20210505
  Transmission Date: 20210717
  Serious: Yes (Hospitalization, Other)
  Sender: FDA-Public Use
  Company Number: GB-MYLANLABS-2021M1024257

PATIENT
  Sex: Female
  Weight: 72.7 kg

DRUGS (2)
  1. CLOZARIL [Suspect]
     Active Substance: CLOZAPINE
     Dosage: UNK
     Route: 048
     Dates: start: 202104
  2. CLOZARIL [Suspect]
     Active Substance: CLOZAPINE
     Indication: SCHIZOPHRENIA
     Dosage: UNK
     Route: 048
     Dates: start: 20200128, end: 20210405

REACTIONS (6)
  - Mental impairment [Recovering/Resolving]
  - Loss of consciousness [Unknown]
  - Abdominal pain [Unknown]
  - Treatment noncompliance [Unknown]
  - Chest pain [Unknown]
  - Adverse event [Unknown]
